FAERS Safety Report 9044720 (Version 1)
Quarter: 2013Q1

REPORT INFORMATION
  Report Type: Spontaneous
  Country: US (occurrence: US)
  Receive Date: 20130130
  Receipt Date: 20130130
  Transmission Date: 20140127
  Serious: Yes (Other)
  Sender: FDA-Public Use
  Company Number: PHEH2013US001974

PATIENT
  Sex: Male

DRUGS (4)
  1. DIOVAN HCT [Suspect]
  2. DIOVAN [Suspect]
     Dosage: 160 MG, UNK
  3. BUMETANIDE [Concomitant]
  4. CHEMOTHERAPEUTICS [Concomitant]

REACTIONS (4)
  - Neoplasm malignant [Unknown]
  - Colitis ulcerative [Unknown]
  - Arthralgia [Unknown]
  - Hypertension [Unknown]
